FAERS Safety Report 17007686 (Version 2)
Quarter: 2020Q1

REPORT INFORMATION
  Report Type: Report from Study
  Country: US (occurrence: US)
  Receive Date: 20191108
  Receipt Date: 20200114
  Transmission Date: 20200409
  Serious: Yes (Hospitalization)
  Sender: FDA-Public Use
  Company Number: US-BIOGEN-2019BI00803972

PATIENT
  Sex: Female
  Weight: 45.9 kg

DRUGS (4)
  1. TYSABRI [Suspect]
     Active Substance: NATALIZUMAB
     Dosage: INFUSED OVER 1 HOUR
     Route: 042
     Dates: start: 20190521
  2. TYSABRI [Suspect]
     Active Substance: NATALIZUMAB
     Indication: MULTIPLE SCLEROSIS
     Route: 065
     Dates: start: 201206, end: 201308
  3. CYCLOBENZAPINE [Concomitant]
     Indication: PRODUCT USED FOR UNKNOWN INDICATION
     Route: 048
     Dates: start: 20180314
  4. TYSABRI [Suspect]
     Active Substance: NATALIZUMAB
     Route: 065
     Dates: start: 201311

REACTIONS (5)
  - Muscular weakness [Unknown]
  - Multiple sclerosis relapse [Recovered/Resolved]
  - Nervous system disorder [Unknown]
  - Visual impairment [Unknown]
  - Dysarthria [Unknown]

NARRATIVE: CASE EVENT DATE: 2019
